FAERS Safety Report 6964067-9 (Version None)
Quarter: 2010Q3

REPORT INFORMATION
  Report Type: 
  Country: None (occurrence: None)
  Receive Date: 20100831
  Receipt Date: 20081226
  Transmission Date: 20110219
  Serious: No
  Sender: FDA-Public Use
  Company Number: IDA-00164

PATIENT
  Age: 54 Year
  Sex: Female

DRUGS (6)
  1. INDERAL [Suspect]
     Indication: PRODUCT USED FOR UNKNOWN INDICATION
     Dosage: ORAL FORMULATION: TABLET
     Route: 048
     Dates: end: 20070312
  2. METOPROLOL TARTRATE [Suspect]
     Indication: TACHYCARDIA
     Dosage: 20 MG BID, ORAL FORMULATION: TABLET
     Route: 048
     Dates: start: 20080826, end: 20080826
  3. (SPIRONOLACTONE) [Concomitant]
  4. ASPIRIN [Concomitant]
  5. (FUROSEMIDE) [Concomitant]
  6. METHIMAZOLE [Concomitant]

REACTIONS (1)
  - FEELING ABNORMAL [None]
